FAERS Safety Report 15717095 (Version 1)
Quarter: 2018Q4

REPORT INFORMATION
  Report Type: Spontaneous
  Country: US (occurrence: US)
  Receive Date: 20181213
  Receipt Date: 20181213
  Transmission Date: 20190205
  Serious: No
  Sender: FDA-Public Use
  Company Number: US-PFIZER INC-2018510663

PATIENT
  Age: 49 Year
  Sex: Female
  Weight: 78.93 kg

DRUGS (2)
  1. LYRICA [Suspect]
     Active Substance: PREGABALIN
     Indication: FIBROMYALGIA
     Dosage: 75 MG, 3X/DAY
     Route: 048
  2. SKELAXIN [METAXALONE] [Concomitant]
     Indication: MUSCLE RELAXANT THERAPY
     Dosage: 800 MG TABLETS, BROKEN IN HALF, TAKEN BY MOUTH, AS NEEDED
     Route: 048

REACTIONS (2)
  - Intentional product use issue [Unknown]
  - Muscle strain [Unknown]

NARRATIVE: CASE EVENT DATE: 201811
